FAERS Safety Report 9932679 (Version 1)
Quarter: 2014Q1

REPORT INFORMATION
  Report Type: Spontaneous
  Country: US (occurrence: US)
  Receive Date: 20140228
  Receipt Date: 20140228
  Transmission Date: 20141002
  Serious: No
  Sender: FDA-Public Use
  Company Number: US-GLAXOSMITHKLINE-A1025089A

PATIENT
  Sex: Female

DRUGS (5)
  1. LAMICTAL [Suspect]
     Indication: PRODUCT USED FOR UNKNOWN INDICATION
  2. LYRICA [Concomitant]
     Dosage: 50MG THREE TIMES PER DAY
  3. NSAIDS [Concomitant]
  4. LITHIUM [Concomitant]
  5. KLONOPIN [Concomitant]
     Dosage: 1MG THREE TIMES PER DAY

REACTIONS (1)
  - Hypersensitivity [Unknown]
